FAERS Safety Report 8478650-5 (Version None)
Quarter: 2012Q2

REPORT INFORMATION
  Report Type: 
  Country: None (occurrence: None)
  Receive Date: 20120629
  Receipt Date: 20120626
  Transmission Date: 20120825
  Serious: Yes (Other)
  Sender: FDA-Public Use
  Company Number: US-PFIZER INC-2012154741

PATIENT
  Sex: Female
  Weight: 49.89 kg

DRUGS (1)
  1. NEURONTIN [Suspect]
     Dosage: UNK
     Route: 048
     Dates: start: 20120201

REACTIONS (3)
  - MENTAL DISORDER [None]
  - CARDIAC VALVE DISEASE [None]
  - ALOPECIA [None]
